FAERS Safety Report 25691501 (Version 2)
Quarter: 2025Q3

REPORT INFORMATION
  Report Type: Report from Study
  Country: PR (occurrence: PR)
  Receive Date: 20250818
  Receipt Date: 20250823
  Transmission Date: 20251021
  Serious: Yes (Hospitalization)
  Sender: ABBVIE
  Company Number: US-ABBVIE-6415187

PATIENT
  Age: 26 Year
  Sex: Male

DRUGS (1)
  1. RINVOQ [Suspect]
     Active Substance: UPADACITINIB
     Indication: Crohn^s disease
     Route: 048
     Dates: start: 20250711, end: 20250814

REACTIONS (4)
  - Gastrointestinal inflammation [Recovering/Resolving]
  - Abdominal pain upper [Recovering/Resolving]
  - Tachycardia [Recovered/Resolved]
  - Headache [Recovered/Resolved]

NARRATIVE: CASE EVENT DATE: 20250101
